FAERS Safety Report 16282778 (Version 1)
Quarter: 2019Q2

REPORT INFORMATION
  Report Type: Spontaneous
  Country: IE (occurrence: IE)
  Receive Date: 20190507
  Receipt Date: 20190507
  Transmission Date: 20190711
  Serious: Yes (Other)
  Sender: FDA-Public Use
  Company Number: IE-TEVA-2019-IE-1048546

PATIENT
  Age: 71 Year
  Sex: Male

DRUGS (11)
  1. SOLPADEINE SOLUBLE TABLETS, PARACETAMOL 500MG, COD 500/30/8 MILLIGRAM [Concomitant]
  2. WARFARIN TEVA 1 MG TABLETS [Suspect]
     Active Substance: WARFARIN
     Dosage: THE PATIENT^S DOSE OF WARFARIN DEPENDS ON THEIR INR WHEN THEY ATTEND THE CLINIC.
  3. LIPITOR [Concomitant]
     Active Substance: ATORVASTATIN CALCIUM
  4. ATACAND [Concomitant]
     Active Substance: CANDESARTAN CILEXETIL
  5. AMLODIPINE (GENERIC) [Concomitant]
  6. DESUNIN [Concomitant]
     Active Substance: CHOLECALCIFEROL
  7. KEPPRA LEVETIRACETAM [Concomitant]
  8. EFUDIX 5% W/W CREAM [Interacting]
     Active Substance: FLUOROURACIL
     Indication: SKIN LESION
     Route: 061
     Dates: start: 20190327
  9. ELTROXIN [Concomitant]
     Active Substance: LEVOTHYROXINE
  10. MOVICOL 13.8G SACHET, POWDER FOR ORAL SOLUTION [Concomitant]
     Dosage: 2-3 SACHET DAILY
  11. PROTIUM [Concomitant]

REACTIONS (2)
  - International normalised ratio increased [Recovered/Resolved]
  - Drug interaction [Not Recovered/Not Resolved]

NARRATIVE: CASE EVENT DATE: 20190402
